FAERS Safety Report 8854609 (Version 2)
Quarter: 2012Q4

REPORT INFORMATION
  Report Type: 
  Country: PE (occurrence: PE)
  Receive Date: 20121023
  Receipt Date: 20121102
  Transmission Date: 20130627
  Serious: Yes (Other)
  Sender: FDA-Public Use
  Company Number: PE-PFIZER INC-2012260627

PATIENT
  Age: 84 Year
  Sex: Female

DRUGS (5)
  1. XALATAN [Suspect]
     Indication: GLAUCOMA
     Dosage: 3 ug, 1x/day
     Route: 047
     Dates: start: 2010
  2. ALPHAGAN [Concomitant]
     Indication: GLAUCOMA
     Dosage: UNK
     Route: 047
     Dates: start: 2011
  3. LOSARTAN [Concomitant]
     Indication: HYPERTENSION ARTERIAL
     Dosage: UNK
     Route: 048
  4. OMEPRAZOLE [Concomitant]
     Indication: GASTRIC ULCER
     Dosage: UNK
     Route: 048
  5. MACRODANTINA [Concomitant]
     Indication: URINARY TRACT INFECTION
     Dosage: UNK
     Route: 048

REACTIONS (2)
  - Cataract [Recovered/Resolved]
  - Cataract [Recovered/Resolved]
